FAERS Safety Report 19765386 (Version 3)
Quarter: 2023Q2

REPORT INFORMATION
  Report Type: Spontaneous
  Country: NO (occurrence: NO)
  Receive Date: 20210830
  Receipt Date: 20230405
  Transmission Date: 20230721
  Serious: Yes (Hospitalization, Other)
  Sender: FDA-Public Use
  Company Number: NO-TAKEDA-2021TUS052433

PATIENT
  Sex: Male

DRUGS (3)
  1. KIOVIG [Suspect]
     Active Substance: HUMAN IMMUNOGLOBULIN G
     Indication: Immunoglobulin therapy
     Dosage: 30 MILLIGRAM, QD
     Route: 065
     Dates: start: 20161018
  2. PFIZER-BIONTECH COVID-19 VACCINE [Suspect]
     Active Substance: TOZINAMERAN
     Indication: COVID-19 immunisation
     Dosage: 30 MICROGRAM SOLUTION FOR INJECTION, SINGLE
     Route: 065
     Dates: start: 20210407, end: 20210407
  3. LUTETIUM (LU177) LILOTOMAB SATETRAXETAN [Concomitant]
     Active Substance: LUTETIUM (LU177) LILOTOMAB SATETRAXETAN
     Indication: Non-Hodgkin^s lymphoma recurrent
     Route: 065

REACTIONS (1)
  - Bronchitis viral [Recovered/Resolved]

NARRATIVE: CASE EVENT DATE: 20210410
